FAERS Safety Report 7248773-7 (Version None)
Quarter: 2011Q1

REPORT INFORMATION
  Report Type: 
  Country: None (occurrence: None)
  Receive Date: 20110121
  Receipt Date: 20110121
  Transmission Date: 20110831
  Serious: No
  Sender: FDA-Public Use
  Company Number: None

PATIENT
  Age: 53 Year
  Sex: Male

DRUGS (3)
  1. LANTUS [Concomitant]
  2. SYRINGE BD NEEDLE U-FINE [Concomitant]
  3. ULTILET/BOCA MEDICAL ALCOHOL SWABS TRIAD [Suspect]
     Dosage: DAILY ON SURFACE OF SKIN BEFORE INJECTING INSULIN
     Dates: start: 20101017, end: 20110101

REACTIONS (2)
  - INJECTION SITE INFECTION [None]
  - PRODUCT QUALITY ISSUE [None]
